FAERS Safety Report 24809073 (Version 2)
Quarter: 2025Q2

REPORT INFORMATION
  Report Type: Spontaneous
  Country: US (occurrence: US)
  Receive Date: 20250106
  Receipt Date: 20250611
  Transmission Date: 20250716
  Serious: Yes (Death, Hospitalization, Other)
  Sender: APOTEX
  Company Number: US-APOTEX-2024AP020388

PATIENT
  Age: 55 Year
  Sex: Female

DRUGS (3)
  1. ZONISAMIDE [Suspect]
     Active Substance: ZONISAMIDE
     Indication: Weight decreased
     Route: 065
     Dates: start: 20230614, end: 20230705
  2. ZONISAMIDE [Suspect]
     Active Substance: ZONISAMIDE
     Route: 065
     Dates: start: 20230614, end: 20230705
  3. ZONISAMIDE [Suspect]
     Active Substance: ZONISAMIDE
     Route: 065
     Dates: start: 20230614, end: 20230705

REACTIONS (8)
  - Pneumonia necrotising [Fatal]
  - Septic shock [Fatal]
  - Vanishing bile duct syndrome [Not Recovered/Not Resolved]
  - Hepatic failure [Unknown]
  - Respiratory failure [Unknown]
  - Drug-induced liver injury [Fatal]
  - Drug reaction with eosinophilia and systemic symptoms [Fatal]
  - Off label use [Unknown]

NARRATIVE: CASE EVENT DATE: 20230712
